FAERS Safety Report 25845674 (Version 1)
Quarter: 2025Q3

REPORT INFORMATION
  Report Type: Spontaneous
  Country: US (occurrence: US)
  Receive Date: 20250925
  Receipt Date: 20250925
  Transmission Date: 20251021
  Serious: Yes (Other)
  Sender: SHILPA MEDICARE
  Company Number: US-KOANAAP-SML-US-2025-00460

PATIENT
  Age: 82 Year
  Sex: Female

DRUGS (1)
  1. IMATINIB [Suspect]
     Active Substance: IMATINIB
     Indication: Gastrointestinal stromal tumour

REACTIONS (1)
  - Oedema peripheral [Unknown]
